FAERS Safety Report 9792975 (Version 2)
Quarter: 2014Q1

REPORT INFORMATION
  Report Type: Spontaneous
  Country: US (occurrence: US)
  Receive Date: 20140102
  Receipt Date: 20140106
  Transmission Date: 20141002
  Serious: No
  Sender: FDA-Public Use
  Company Number: US-JNJFOC-20131214867

PATIENT
  Sex: Male

DRUGS (4)
  1. DURAGESIC [Suspect]
     Indication: CROHN^S DISEASE
     Dosage: 100 MCG/HR + 100MCG/HR EVERY 24 HOURS
     Route: 062
     Dates: start: 2009
  2. PRILOSEC [Concomitant]
     Indication: PRODUCT USED FOR UNKNOWN INDICATION
     Route: 065
  3. LASIX [Concomitant]
     Indication: PRODUCT USED FOR UNKNOWN INDICATION
     Route: 065
  4. ENTOCORT [Concomitant]
     Indication: PRODUCT USED FOR UNKNOWN INDICATION
     Route: 065

REACTIONS (3)
  - Off label use [Unknown]
  - Drug diversion [Not Recovered/Not Resolved]
  - Drug prescribing error [Not Recovered/Not Resolved]
